FAERS Safety Report 11514865 (Version 1)
Quarter: 2015Q3

REPORT INFORMATION
  Report Type: Spontaneous
  Country: US (occurrence: US)
  Receive Date: 20150916
  Receipt Date: 20150916
  Transmission Date: 20151125
  Serious: No
  Sender: FDA-Public Use
  Company Number: US-BAYER-2015-414938

PATIENT
  Age: 43 Year
  Sex: Female

DRUGS (3)
  1. CLIMARA PRO [Suspect]
     Active Substance: ESTRADIOL\LEVONORGESTREL
     Indication: HOT FLUSH
  2. CLIMARA PRO [Suspect]
     Active Substance: ESTRADIOL\LEVONORGESTREL
     Indication: MENOPAUSE
     Dosage: UNK
     Route: 062
     Dates: start: 201508, end: 2015
  3. CLIMARA PRO [Suspect]
     Active Substance: ESTRADIOL\LEVONORGESTREL
     Indication: MOOD ALTERED

REACTIONS (2)
  - Product adhesion issue [None]
  - Product shape issue [None]

NARRATIVE: CASE EVENT DATE: 2015
